FAERS Safety Report 12599657 (Version 1)
Quarter: 2016Q3

REPORT INFORMATION
  Report Type: Spontaneous
  Country: None (occurrence: US)
  Receive Date: 20160727
  Receipt Date: 20160727
  Transmission Date: 20161109
  Serious: No
  Sender: FDA-Public Use
  Company Number: US-MATRIXX INITIATIVES, INC.-1055633

PATIENT

DRUGS (1)
  1. ZICAM COLD REMEDY SWABS [Suspect]
     Active Substance: ZINC GLUCONATE
     Indication: NASOPHARYNGITIS
     Route: 045

REACTIONS (2)
  - Glossitis [None]
  - Parosmia [None]
